FAERS Safety Report 9935014 (Version 2)
Quarter: 2014Q2

REPORT INFORMATION
  Report Type: Spontaneous
  Country: IT (occurrence: IT)
  Receive Date: 20140228
  Receipt Date: 20140423
  Transmission Date: 20141212
  Serious: Yes (Hospitalization)
  Sender: FDA-Public Use
  Company Number: IT-PFIZER INC-2014056210

PATIENT
  Age: 54 Year
  Sex: Female

DRUGS (2)
  1. ZIPRASIDONE HCL [Suspect]
     Dosage: 1920 MG, TOTAL
     Route: 048
     Dates: start: 20131209, end: 20131209
  2. RIVOTRIL [Suspect]
     Dosage: 75 MG,TOTAL
     Route: 048
     Dates: start: 20131209, end: 20131209

REACTIONS (5)
  - Overdose [Not Recovered/Not Resolved]
  - Altered state of consciousness [Not Recovered/Not Resolved]
  - Electrocardiogram QT prolonged [Not Recovered/Not Resolved]
  - Drug abuse [Not Recovered/Not Resolved]
  - Sopor [Not Recovered/Not Resolved]
